FAERS Safety Report 18330676 (Version 2)
Quarter: 2020Q4

REPORT INFORMATION
  Report Type: Spontaneous
  Country: US (occurrence: US)
  Receive Date: 20200930
  Receipt Date: 20201028
  Transmission Date: 20210113
  Serious: No
  Sender: FDA-Public Use
  Company Number: US-PFIZER INC-2020139920

PATIENT
  Age: 65 Year
  Sex: Female

DRUGS (4)
  1. ESTRING [Suspect]
     Active Substance: ESTRADIOL
     Indication: VULVOVAGINAL BURNING SENSATION
     Dosage: (2MG/7MCG EVERY 60 DAYS)
  2. ESTRING [Suspect]
     Active Substance: ESTRADIOL
     Indication: VULVOVAGINAL PRURITUS
     Dosage: UNK, EVERY 3 MONTHS (INSERTED ESTRADIOL EVERY 90 DAYS)
  3. ESTRING [Suspect]
     Active Substance: ESTRADIOL
     Indication: POSTMENOPAUSE
     Dosage: UNK (INSERT ONCE 2 MONTHS)
  4. ESTRING [Suspect]
     Active Substance: ESTRADIOL
     Indication: VULVOVAGINAL DRYNESS

REACTIONS (6)
  - Eyelid infection [Unknown]
  - Drug ineffective [Unknown]
  - Off label use [Unknown]
  - Chalazion [Unknown]
  - Tooth fracture [Unknown]
  - Burning sensation [Unknown]

NARRATIVE: CASE EVENT DATE: 2019
